FAERS Safety Report 9970397 (Version 2)
Quarter: 2014Q1

REPORT INFORMATION
  Report Type: Spontaneous
  Country: US (occurrence: None)
  Receive Date: 20140304
  Receipt Date: 20140313
  Transmission Date: 20141002
  Serious: Yes (Hospitalization, Other)
  Sender: FDA-Public Use
  Company Number: AUR-APL-2014-02041

PATIENT
  Age: 44 Year
  Sex: Female

DRUGS (1)
  1. OXYCODONE (OXYCODONE) [Suspect]
     Indication: PRODUCT USED FOR UNKNOWN INDICATION

REACTIONS (4)
  - Adrenal insufficiency [None]
  - Drug abuse [None]
  - Syncope [None]
  - Blood follicle stimulating hormone increased [None]
